FAERS Safety Report 4470623-2 (Version None)
Quarter: 2004Q4

REPORT INFORMATION
  Report Type: 
  Country: None (occurrence: None)
  Receive Date: 20041006
  Receipt Date: 20041006
  Transmission Date: 20050328
  Serious: Yes (Hospitalization)
  Sender: FDA-Public Use
  Company Number: None

PATIENT
  Sex: Female
  Weight: 65.318 kg

DRUGS (7)
  1. PIOGLITAZONE HCL [Suspect]
     Dosage: 45 MG QD PO
     Route: 048
  2. PLACEBO [Suspect]
  3. ARICEPT [Concomitant]
  4. ZESTORETIC [Concomitant]
  5. BUFFERIN [Concomitant]
  6. VITAMIN E [Concomitant]
  7. TYLENOL [Concomitant]

REACTIONS (1)
  - LUMBAR VERTEBRAL FRACTURE [None]
